FAERS Safety Report 4953947-1 (Version None)
Quarter: 2006Q1

REPORT INFORMATION
  Report Type: 
  Country: None (occurrence: None)
  Receive Date: 20060327
  Receipt Date: 20060320
  Transmission Date: 20060701
  Serious: Yes (Death, Life-Threatening, Hospitalization, Other)
  Sender: FDA-Public Use
  Company Number: US-BRISTOL-MYERS SQUIBB COMPANY-13320742

PATIENT
  Age: 63 Year
  Sex: Male

DRUGS (7)
  1. ERBITUX [Suspect]
     Indication: NEOPLASM MALIGNANT
     Dosage: 2ND DOSE. DOSE 1 ON 01-FEB-06.
     Route: 042
     Dates: start: 20060215, end: 20060215
  2. BENADRYL [Concomitant]
     Indication: PREMEDICATION
     Route: 042
     Dates: start: 20060215, end: 20060215
  3. RADIATION THERAPY [Concomitant]
     Dates: start: 20060215, end: 20060215
  4. DILANTIN [Concomitant]
  5. VICODIN [Concomitant]
  6. ALBUTEROL [Concomitant]
  7. OXYCODONE [Concomitant]

REACTIONS (4)
  - CARDIO-RESPIRATORY ARREST [None]
  - DEATH [None]
  - DEHYDRATION [None]
  - MYOCARDIAL INFARCTION [None]
